FAERS Safety Report 25895130 (Version 4)
Quarter: 2025Q4

REPORT INFORMATION
  Report Type: Spontaneous
  Country: TH (occurrence: None)
  Receive Date: 20251008
  Receipt Date: 20251209
  Transmission Date: 20260117
  Serious: Yes (Hospitalization)
  Sender: AMERICAN REGENT
  Company Number: TH-AMERICAN REGENT INC-2025003698

PATIENT
  Age: 30 Year
  Sex: Female

DRUGS (2)
  1. FERINJECT [Suspect]
     Active Substance: FERRIC CARBOXYMALTOSE
     Indication: Iron deficiency anaemia
     Dosage: 1000 MILLIGRAM, SINGLE
     Dates: start: 20250926, end: 20250926
  2. SODIUM CHLORIDE [Concomitant]
     Active Substance: SODIUM CHLORIDE
     Indication: Product used for unknown indication
     Dosage: UNK
     Route: 065

REACTIONS (8)
  - Uterine contractions during pregnancy [Recovered/Resolved]
  - Hyperhidrosis [Recovered/Resolved]
  - Erythema [Recovered/Resolved]
  - Abdominal pain [Recovered/Resolved]
  - Chest discomfort [Recovered/Resolved]
  - Urticaria [Recovered/Resolved]
  - Dyspnoea [Recovered/Resolved]
  - Maternal exposure during pregnancy [Unknown]

NARRATIVE: CASE EVENT DATE: 20250926
